FAERS Safety Report 6095245-1 (Version None)
Quarter: 2009Q1

REPORT INFORMATION
  Report Type: 
  Country: None (occurrence: None)
  Receive Date: 20090227
  Receipt Date: 20080221
  Transmission Date: 20090719
  Serious: No
  Sender: FDA-Public Use
  Company Number: A0711007A

PATIENT

DRUGS (2)
  1. LAMICTAL [Suspect]
     Indication: BIPOLAR II DISORDER
     Dosage: 25MG PER DAY
     Route: 048
  2. NO CONCURRENT MEDICATION [Concomitant]

REACTIONS (3)
  - HEADACHE [None]
  - INSOMNIA [None]
  - MEMORY IMPAIRMENT [None]
